FAERS Safety Report 8624347-8 (Version None)
Quarter: 2012Q3

REPORT INFORMATION
  Report Type: 
  Country: None (occurrence: None)
  Receive Date: 20120827
  Receipt Date: 20120816
  Transmission Date: 20120928
  Serious: Yes (Hospitalization, Other)
  Sender: FDA-Public Use
  Company Number: US-ACTELION-A-US2012-63087

PATIENT
  Age: 30 Year
  Sex: Female

DRUGS (6)
  1. TRACLEER [Suspect]
     Indication: PULMONARY ARTERIAL HYPERTENSION
     Dosage: UNK
     Route: 048
  2. OXYGEN [Concomitant]
  3. DIGOXIN [Concomitant]
  4. VIAGRA [Concomitant]
  5. REMODULIN [Concomitant]
  6. COUMADIN [Concomitant]

REACTIONS (5)
  - LOSS OF CONSCIOUSNESS [None]
  - MEDICAL DEVICE COMPLICATION [None]
  - PULMONARY ARTERIAL HYPERTENSION [None]
  - PERICARDIAL EFFUSION [None]
  - SYNCOPE [None]
